FAERS Safety Report 7126334-8 (Version None)
Quarter: 2010Q4

REPORT INFORMATION
  Report Type: 
  Country: None (occurrence: None)
  Receive Date: 20101129
  Receipt Date: 20101115
  Transmission Date: 20110411
  Serious: Yes (Death)
  Sender: FDA-Public Use
  Company Number: NZ-SANOFI-AVENTIS-2010SA055431

PATIENT
  Sex: Male
  Weight: 105 kg

DRUGS (10)
  1. ARAVA [Suspect]
     Indication: RHEUMATOID ARTHRITIS
     Route: 065
     Dates: start: 20020920, end: 20040701
  2. METHOTREXATE [Concomitant]
     Indication: RHEUMATOID ARTHRITIS
     Route: 048
     Dates: start: 19991201
  3. AZATHIOPRINE [Concomitant]
     Route: 065
  4. PREDNISONE [Concomitant]
     Indication: RHEUMATOID ARTHRITIS
     Route: 065
     Dates: start: 20000525
  5. FOLIC ACID [Concomitant]
     Indication: RHEUMATOID ARTHRITIS
     Route: 048
     Dates: start: 19991211
  6. ASPIRIN [Concomitant]
     Route: 065
  7. OMEPRAZOLE [Concomitant]
     Route: 048
  8. NITROGLYCERIN [Concomitant]
     Dosage: DOSE:1 PUFF(S)
     Route: 060
  9. PARACETAMOL [Concomitant]
     Indication: RHEUMATOID ARTHRITIS
     Route: 065
  10. ATENOLOL [Concomitant]
     Route: 065

REACTIONS (7)
  - AREFLEXIA [None]
  - CARDIOGENIC SHOCK [None]
  - GAIT DISTURBANCE [None]
  - HYPOAESTHESIA [None]
  - MYOCARDIAL INFARCTION [None]
  - NEUROPATHY PERIPHERAL [None]
  - SENSORY LOSS [None]
